FAERS Safety Report 19923875 (Version 1)
Quarter: 2021Q4

REPORT INFORMATION
  Report Type: Spontaneous
  Country: US (occurrence: US)
  Receive Date: 20211006
  Receipt Date: 20211006
  Transmission Date: 20220303
  Serious: No
  Sender: FDA-Public Use
  Company Number: US-KARYOPHARM-2021KPT001166

PATIENT

DRUGS (8)
  1. XPOVIO [Suspect]
     Active Substance: SELINEXOR
     Indication: Plasma cell myeloma
     Dosage: 100 MG, WEEKLY
     Route: 048
     Dates: start: 20210903
  2. ALOXI [Concomitant]
     Active Substance: PALONOSETRON HYDROCHLORIDE
  3. EMEND [Concomitant]
     Active Substance: APREPITANT
  4. LOSARTAN [Concomitant]
     Active Substance: LOSARTAN
  5. DECADRON [Concomitant]
     Active Substance: DEXAMETHASONE
  6. ANDROGEL [Concomitant]
     Active Substance: TESTOSTERONE
  7. ACYCLOVIR [Concomitant]
     Active Substance: ACYCLOVIR
  8. ZOFRAN [Concomitant]
     Active Substance: ONDANSETRON HYDROCHLORIDE

REACTIONS (3)
  - Fatigue [Unknown]
  - Abdominal pain upper [Unknown]
  - Decreased appetite [Unknown]

NARRATIVE: CASE EVENT DATE: 20210901
